FAERS Safety Report 9406405 (Version 1)
Quarter: 2013Q3

REPORT INFORMATION
  Report Type: Spontaneous
  Country: US (occurrence: US)
  Receive Date: 20130718
  Receipt Date: 20130718
  Transmission Date: 20140515
  Serious: No
  Sender: FDA-Public Use
  Company Number: US-009507513-1307USA007071

PATIENT
  Sex: Female

DRUGS (1)
  1. FOSAMAX [Suspect]
     Indication: OSTEOPOROSIS
     Dosage: UNSPECIFIED DOSE, QD
     Route: 048
     Dates: end: 200806

REACTIONS (4)
  - Gingival injury [Not Recovered/Not Resolved]
  - Impaired healing [Not Recovered/Not Resolved]
  - Tooth extraction [Not Recovered/Not Resolved]
  - Dental operation [Not Recovered/Not Resolved]
